FAERS Safety Report 5409913-5 (Version None)
Quarter: 2007Q3

REPORT INFORMATION
  Report Type: 
  Country: None (occurrence: None)
  Receive Date: 20070809
  Receipt Date: 20070731
  Transmission Date: 20080115
  Serious: Yes (Life-Threatening, Hospitalization, Other)
  Sender: FDA-Public Use
  Company Number: US-PFIZER INC-2007064768

PATIENT
  Sex: Male
  Weight: 89.545 kg

DRUGS (1)
  1. CHANTIX [Suspect]
     Indication: SMOKING CESSATION THERAPY
     Dates: start: 20070701, end: 20070701

REACTIONS (4)
  - CONSTIPATION [None]
  - DECREASED APPETITE [None]
  - LUNG NEOPLASM MALIGNANT [None]
  - STOMACH DISCOMFORT [None]
